FAERS Safety Report 15490405 (Version 1)
Quarter: 2018Q4

REPORT INFORMATION
  Report Type: Spontaneous
  Country: US (occurrence: US)
  Receive Date: 20181011
  Receipt Date: 20181011
  Transmission Date: 20190205
  Serious: No
  Sender: FDA-Public Use
  Company Number: US-TEVA-2018-US-961671

PATIENT
  Age: 12 Year
  Sex: Female

DRUGS (2)
  1. METHYERTAB-A [Suspect]
     Active Substance: METHYLPHENIDATE HYDROCHLORIDE
     Indication: PRODUCT USED FOR UNKNOWN INDICATION
     Route: 065
  2. METHYLPHENIDATE TRIGEN LAB [Suspect]
     Active Substance: METHYLPHENIDATE
     Route: 065

REACTIONS (1)
  - Hyperhidrosis [Unknown]
